FAERS Safety Report 6026997-4 (Version None)
Quarter: 2009Q1

REPORT INFORMATION
  Report Type: 
  Country: None (occurrence: None)
  Receive Date: 20090105
  Receipt Date: 20081222
  Transmission Date: 20090719
  Serious: Yes (Hospitalization)
  Sender: FDA-Public Use
  Company Number: US-PFIZER INC-2008158732

PATIENT

DRUGS (1)
  1. ZYVOX [Suspect]
     Dosage: 600 MG/300 ML

REACTIONS (1)
  - BURNS SECOND DEGREE [None]
